FAERS Safety Report 5905225-1 (Version None)
Quarter: 2008Q4

REPORT INFORMATION
  Report Type: 
  Country: None (occurrence: None)
  Receive Date: 20081001
  Receipt Date: 20080923
  Transmission Date: 20090506
  Serious: Yes (Hospitalization)
  Sender: FDA-Public Use
  Company Number: IT-PFIZER INC-2008077390

PATIENT
  Sex: Female

DRUGS (3)
  1. CELEBREX [Suspect]
     Indication: ARTHRALGIA
     Route: 048
     Dates: start: 20080904, end: 20080907
  2. VASERETIC [Concomitant]
  3. CLONIDINE HCL [Concomitant]

REACTIONS (3)
  - HYPERHIDROSIS [None]
  - HYPERTENSIVE CRISIS [None]
  - NAUSEA [None]
